FAERS Safety Report 4611040-1 (Version None)
Quarter: 2005Q1

REPORT INFORMATION
  Report Type: 
  Country: None (occurrence: None)
  Receive Date: 20050317
  Receipt Date: 19981020
  Transmission Date: 20050727
  Serious: Yes (Death, Life-Threatening)
  Sender: FDA-Public Use
  Company Number: NZ01-00163

PATIENT
  Age: 75 Year
  Sex: Female

DRUGS (3)
  1. CLEXANE [Suspect]
     Indication: ANGINA UNSTABLE
     Route: 058
     Dates: start: 19981013, end: 19981016
  2. ASPIRIN [Concomitant]
  3. ATENOLOL [Concomitant]

REACTIONS (5)
  - ABDOMINAL HAEMATOMA [None]
  - ACUTE PRERENAL FAILURE [None]
  - INTRA-ABDOMINAL HAEMORRHAGE [None]
  - RETROPERITONEAL HAEMATOMA [None]
  - SHOCK [None]
